FAERS Safety Report 20053839 (Version 1)
Quarter: 2021Q4

REPORT INFORMATION
  Report Type: Spontaneous
  Country: RU (occurrence: RU)
  Receive Date: 20211110
  Receipt Date: 20211110
  Transmission Date: 20220304
  Serious: Yes (Other)
  Sender: FDA-Public Use
  Company Number: RU-Merck Healthcare KGaA-9277255

PATIENT
  Age: 58 Year
  Sex: Male

DRUGS (4)
  1. ERBITUX [Suspect]
     Active Substance: CETUXIMAB
     Indication: Tonsil cancer
     Dosage: 400 MG/M2, UNKNOWN
     Route: 065
     Dates: start: 20200603
  2. ERBITUX [Suspect]
     Active Substance: CETUXIMAB
     Dosage: 250 MG/M2, WEEKLY (1/W)
     Route: 065
  3. PACLITAXEL [Concomitant]
     Active Substance: PACLITAXEL
     Indication: Tonsil cancer
     Dosage: 75-100 MG/M2, WEEKLY (1/W)
     Dates: start: 20200603
  4. CARBOPLATIN [Concomitant]
     Active Substance: CARBOPLATIN
     Indication: Tonsil cancer
     Dosage: AUC 2.5, WEEKLY (1/W)
     Dates: start: 20200603

REACTIONS (1)
  - Neuropathy peripheral [Unknown]
